FAERS Safety Report 4704459-1 (Version None)
Quarter: 2005Q2

REPORT INFORMATION
  Report Type: 
  Country: None (occurrence: None)
  Receive Date: 20050630
  Receipt Date: 20050630
  Transmission Date: 20051028
  Serious: Yes (Other)
  Sender: FDA-Public Use
  Company Number: None

PATIENT
  Age: 51 Year
  Sex: Female
  Weight: 58.9676 kg

DRUGS (2)
  1. CYMBALTA [Suspect]
     Dosage: 1 CAPSULE DAILY ORAL
     Route: 048
  2. ZELNORM [Suspect]
     Dosage: 1 TALET DAILY ORAL
     Route: 048

REACTIONS (3)
  - BEDRIDDEN [None]
  - LETHARGY [None]
  - SOMNOLENCE [None]
